FAERS Safety Report 7230045 (Version 3)
Quarter: 2014Q4

REPORT INFORMATION
  Report Type: Spontaneous
  Country: US (occurrence: None)
  Receive Date: 20091208
  Receipt Date: 20141003
  Transmission Date: 20150529
  Serious: Yes (Death)
  Sender: FDA-Public Use
  Company Number: HA09-098-AE

PATIENT
  Age: 66 Year
  Sex: Male
  Weight: 181 kg

DRUGS (22)
  1. CYCLOBENZAPRINE [Suspect]
     Active Substance: CYCLOBENZAPRINE
     Route: 048
     Dates: start: 20000816
  2. ATORVASTATIN [Concomitant]
     Active Substance: ATORVASTATIN
  3. LEVOTHYROXINE [Concomitant]
     Active Substance: LEVOTHYROXINE
  4. HYDROCODONE [Concomitant]
     Active Substance: HYDROCODONE
  5. SAW PALMETTO (SERENOA REPENS) [Concomitant]
     Active Substance: SAW PALMETTO
  6. SALBUTAMOL SULFATE [Concomitant]
     Active Substance: ALBUTEROL SULFATE
  7. PLACEBO [Suspect]
     Active Substance: UNSPECIFIED INGREDIENT
  8. VITAMIN B12 [Concomitant]
     Active Substance: CYANOCOBALAMIN
  9. ERYTHROMYCIN. [Concomitant]
     Active Substance: ERYTHROMYCIN
  10. CALCIUM [Concomitant]
     Active Substance: CALCIUM
  11. DUTASTERIDE. [Concomitant]
     Active Substance: DUTASTERIDE
  12. NAPROXEN. [Suspect]
     Active Substance: NAPROXEN
     Indication: ARTHRITIS
     Dosage: 500MG 2X/DAY ORALLY
     Route: 048
     Dates: start: 20080107, end: 20091103
  13. LOPERAMIDE HCL (IMODIUM) [Concomitant]
  14. TAMSULOSIN HYDROCHLORIDE. [Concomitant]
     Active Substance: TAMSULOSIN HYDROCHLORIDE
  15. NEXIUM [Concomitant]
     Active Substance: ESOMEPRAZOLE MAGNESIUM
  16. MAGNESIUM [Concomitant]
     Active Substance: MAGNESIUM
  17. IBUPROFEN. [Suspect]
     Active Substance: IBUPROFEN
  18. METFORMIN [Concomitant]
     Active Substance: METFORMIN HYDROCHLORIDE
  19. POTASSIUM [Concomitant]
     Active Substance: POTASSIUM
  20. NAPROXEN TABLETS [Suspect]
     Active Substance: NAPROXEN
     Indication: ARTHRITIS
     Dosage: 375MG 2X/DAY ORALLY
     Route: 048
     Dates: start: 20070509, end: 20080106
  21. CELECOXIB. [Suspect]
     Active Substance: CELECOXIB
  22. HYDROCODONE [Concomitant]
     Active Substance: HYDROCODONE

REACTIONS (2)
  - Death [None]
  - Toxicity to various agents [None]

NARRATIVE: CASE EVENT DATE: 20091104
